FAERS Safety Report 8222308-4 (Version None)
Quarter: 2012Q1

REPORT INFORMATION
  Report Type: 
  Country: None (occurrence: None)
  Receive Date: 20120320
  Receipt Date: 20120312
  Transmission Date: 20120608
  Serious: Yes (Other)
  Sender: FDA-Public Use
  Company Number: JP-GLAXOSMITHKLINE-B0789012A

PATIENT
  Age: 35 Year
  Sex: Female

DRUGS (4)
  1. SILECE [Concomitant]
     Dosage: 1MG PER DAY
     Route: 048
     Dates: start: 20120224
  2. PAXIL [Suspect]
     Indication: ADJUSTMENT DISORDER
     Dosage: 10MG PER DAY
     Route: 048
     Dates: start: 20120214, end: 20120306
  3. LENDORMIN [Concomitant]
     Dosage: .25MG PER DAY
     Route: 048
     Dates: start: 20120216
  4. DEPAS [Concomitant]
     Dosage: 1.5MG PER DAY
     Route: 048
     Dates: start: 20120216, end: 20120306

REACTIONS (5)
  - LOGORRHOEA [None]
  - HYPOMANIA [None]
  - ANGER [None]
  - THINKING ABNORMAL [None]
  - INSOMNIA [None]
